FAERS Safety Report 9507818 (Version 2)
Quarter: 2013Q4

REPORT INFORMATION
  Report Type: Spontaneous
  Country: SE (occurrence: SE)
  Receive Date: 20130909
  Receipt Date: 20131015
  Transmission Date: 20140711
  Serious: Yes (Life-Threatening, Hospitalization, Other)
  Sender: FDA-Public Use
  Company Number: SE-PFIZER INC-2013254149

PATIENT
  Age: 75 Year
  Sex: Female

DRUGS (5)
  1. ATORVASTATIN CALCIUM [Suspect]
     Dosage: 80 MG, DAILY
     Dates: start: 20121128
  2. DALACIN [Interacting]
     Dosage: UNK
  3. KAVEPENIN [Interacting]
     Dosage: UNK
  4. ENALAPRIL [Concomitant]
     Dosage: UNK
  5. SPIRONOLACTONE [Concomitant]

REACTIONS (7)
  - Rhabdomyolysis [Recovered/Resolved]
  - Drug interaction [Unknown]
  - Renal failure [Unknown]
  - Hepatic failure [Unknown]
  - Renal haemorrhage [Unknown]
  - Cardiac failure [Unknown]
  - Anaemia [Unknown]
